FAERS Safety Report 17228378 (Version 18)
Quarter: 2025Q2

REPORT INFORMATION
  Report Type: Report from Study
  Country: US (occurrence: US)
  Receive Date: 20200103
  Receipt Date: 20250402
  Transmission Date: 20250716
  Serious: Yes (Hospitalization, Other)
  Sender: TAKEDA
  Company Number: US-SHIRE-US201945625

PATIENT
  Age: 53 Year
  Sex: Female
  Weight: 63 kg

DRUGS (37)
  1. HUMAN IMMUNOGLOBULIN G [Suspect]
     Active Substance: HUMAN IMMUNOGLOBULIN G
     Indication: IgG deficiency
     Dosage: 30 GRAM, Q4WEEKS
     Dates: start: 20161205
  2. HUMAN IMMUNOGLOBULIN G [Suspect]
     Active Substance: HUMAN IMMUNOGLOBULIN G
     Indication: Immunodeficiency common variable
  3. HUMAN IMMUNOGLOBULIN G [Suspect]
     Active Substance: HUMAN IMMUNOGLOBULIN G
     Indication: Primary immunodeficiency syndrome
  4. HUMAN IMMUNOGLOBULIN G [Suspect]
     Active Substance: HUMAN IMMUNOGLOBULIN G
     Indication: Osteoarthritis
  5. HUMAN IMMUNOGLOBULIN G [Suspect]
     Active Substance: HUMAN IMMUNOGLOBULIN G
     Indication: Immunodeficiency
  6. VYVANSE [Suspect]
     Active Substance: LISDEXAMFETAMINE DIMESYLATE
     Indication: Narcolepsy
     Dosage: 70 MILLIGRAM, QD
     Dates: start: 202408
  7. LISDEXAMFETAMINE DIMESYLATE [Suspect]
     Active Substance: LISDEXAMFETAMINE DIMESYLATE
     Indication: Product used for unknown indication
  8. ACETAMINOPHEN [Concomitant]
     Active Substance: ACETAMINOPHEN
  9. DIPHENHYDRAMINE [Concomitant]
     Active Substance: DIPHENHYDRAMINE
  10. LIDOCAINE [Concomitant]
     Active Substance: LIDOCAINE
  11. SODIUM CHLORIDE [Concomitant]
     Active Substance: SODIUM CHLORIDE
  12. EPINEPHRINE [Concomitant]
     Active Substance: EPINEPHRINE
  13. GABAPENTIN [Concomitant]
     Active Substance: GABAPENTIN
  14. ROBAXIN [Concomitant]
     Active Substance: METHOCARBAMOL
  15. CEFADROXIL [Concomitant]
     Active Substance: CEFADROXIL
  16. CYMBALTA [Concomitant]
     Active Substance: DULOXETINE HYDROCHLORIDE
  17. TESTOSTERONE [Concomitant]
     Active Substance: TESTOSTERONE
  18. PROGESTERONE [Concomitant]
     Active Substance: PROGESTERONE
  19. ARMOUR THYROID [Concomitant]
     Active Substance: THYROID, PORCINE
  20. DULCOLAX BALANCE [Concomitant]
     Active Substance: POLYETHYLENE GLYCOL 3350
  21. HYALURONIC ACID [Concomitant]
     Active Substance: HYALURONIC ACID
  22. XOLAIR [Concomitant]
     Active Substance: OMALIZUMAB
  23. GENOTROPIN [Concomitant]
     Active Substance: SOMATROPIN
  24. TRAZODONE [Concomitant]
     Active Substance: TRAZODONE HYDROCHLORIDE
  25. HYDROXYZINE [Concomitant]
     Active Substance: HYDROXYZINE HYDROCHLORIDE
  26. SYNTHROID [Concomitant]
     Active Substance: LEVOTHYROXINE SODIUM
  27. MODERNA COVID-19 VACCINE [Concomitant]
     Active Substance: ELASOMERAN
  28. MUPIROCIN [Concomitant]
     Active Substance: MUPIROCIN
     Indication: Rash
     Route: 061
  29. CEPHALEXIN [Concomitant]
     Active Substance: CEPHALEXIN
     Indication: Staphylococcal infection
  30. PREDNISONE [Concomitant]
     Active Substance: PREDNISONE
     Indication: Idiopathic urticaria
     Dosage: UNK, QD
  31. IBUPROFEN [Concomitant]
     Active Substance: IBUPROFEN
  32. TOPIRAMATE [Concomitant]
     Active Substance: TOPIRAMATE
  33. DULOXETINE HYDROCHLORIDE [Concomitant]
     Active Substance: DULOXETINE HYDROCHLORIDE
  34. LEVOTHYROXINE SODIUM [Concomitant]
     Active Substance: LEVOTHYROXINE SODIUM
  35. MIDODRINE HYDROCHLORIDE [Concomitant]
     Active Substance: MIDODRINE HYDROCHLORIDE
  36. OXYBUTYNIN CHLORIDE [Concomitant]
     Active Substance: OXYBUTYNIN CHLORIDE
  37. TAMSULOSIN [Concomitant]
     Active Substance: TAMSULOSIN

REACTIONS (41)
  - Escherichia sepsis [Unknown]
  - Kidney infection [Unknown]
  - Staphylococcal infection [Unknown]
  - Nephrolithiasis [Unknown]
  - Tooth infection [Recovered/Resolved]
  - Swelling face [Unknown]
  - Oral disorder [Unknown]
  - Oral pain [Unknown]
  - Idiopathic urticaria [Unknown]
  - Sinus disorder [Unknown]
  - Infusion related reaction [Unknown]
  - Bone pain [Unknown]
  - Thirst [Unknown]
  - Tachypnoea [Unknown]
  - Pleurisy [Unknown]
  - Blood pressure abnormal [Unknown]
  - COVID-19 [Unknown]
  - Dry mouth [Unknown]
  - Paranasal sinus discomfort [Unknown]
  - Insurance issue [Not Recovered/Not Resolved]
  - Sinusitis [Unknown]
  - Ear pain [Unknown]
  - Off label use [Unknown]
  - Product use issue [Not Recovered/Not Resolved]
  - Product availability issue [Not Recovered/Not Resolved]
  - Product use issue [Not Recovered/Not Resolved]
  - Inability to afford medication [Not Recovered/Not Resolved]
  - Aphthous ulcer [Unknown]
  - Groin pain [Unknown]
  - Throat tightness [Unknown]
  - Pain [Unknown]
  - Rash [Unknown]
  - Fatigue [Not Recovered/Not Resolved]
  - Headache [Unknown]
  - Myalgia [Unknown]
  - Diarrhoea [Unknown]
  - Pyrexia [Unknown]
  - Chest discomfort [Unknown]
  - Nausea [Unknown]
  - Pain in extremity [Unknown]
  - Nasopharyngitis [Unknown]

NARRATIVE: CASE EVENT DATE: 20161205
